FAERS Safety Report 9856060 (Version 4)
Quarter: 2014Q1

REPORT INFORMATION
  Report Type: Spontaneous
  Country: US (occurrence: US)
  Receive Date: 20140130
  Receipt Date: 20140328
  Transmission Date: 20141002
  Serious: Yes (Death, Other)
  Sender: FDA-Public Use
  Company Number: US-CELGENEUS-163-21880-14014450

PATIENT
  Age: 79 Year
  Sex: Female

DRUGS (5)
  1. REVLIMID [Suspect]
     Indication: PLASMA CELL MYELOMA
     Dosage: 25 MILLIGRAM
     Route: 048
     Dates: start: 200904
  2. REVLIMID [Suspect]
     Dosage: 25 MILLIGRAM
     Route: 048
     Dates: start: 201106
  3. REVLIMID [Suspect]
     Dosage: 25 MILLIGRAM
     Route: 048
     Dates: start: 201206
  4. REVLIMID [Suspect]
     Dosage: 15 MILLIGRAM
     Route: 048
     Dates: start: 20131218, end: 20140123
  5. DECADRON [Concomitant]
     Indication: PLASMA CELL MYELOMA
     Route: 048

REACTIONS (4)
  - Failure to thrive [Fatal]
  - Malnutrition [Fatal]
  - Compression fracture [Unknown]
  - Depression [Unknown]
